FAERS Safety Report 16776991 (Version 1)
Quarter: 2019Q3

REPORT INFORMATION
  Report Type: Spontaneous
  Country: US (occurrence: US)
  Receive Date: 20190905
  Receipt Date: 20190905
  Transmission Date: 20191005
  Serious: No
  Sender: FDA-Public Use
  Company Number: US-BAUSCH-BL-2019-025086

PATIENT
  Age: 51 Year
  Sex: Female

DRUGS (3)
  1. XIFAXAN [Suspect]
     Active Substance: RIFAXIMIN
     Indication: HEPATIC CIRRHOSIS
     Route: 048
     Dates: start: 201902
  2. LACTULOSE. [Suspect]
     Active Substance: LACTULOSE
     Indication: CEREBRAL DISORDER
     Route: 048
     Dates: start: 201902
  3. XIFAXAN [Suspect]
     Active Substance: RIFAXIMIN
     Indication: FUNGAL INFECTION

REACTIONS (2)
  - Therapeutic response unexpected [Unknown]
  - Tremor [Unknown]

NARRATIVE: CASE EVENT DATE: 2019
